FAERS Safety Report 4774157-7 (Version None)
Quarter: 2005Q3

REPORT INFORMATION
  Report Type: 
  Country: None (occurrence: None)
  Receive Date: 20050919
  Receipt Date: 20050901
  Transmission Date: 20060218
  Serious: Yes (Hospitalization)
  Sender: FDA-Public Use
  Company Number: 2005P1000374

PATIENT
  Age: 61 Year
  Sex: Male

DRUGS (7)
  1. RETEVASE [Suspect]
     Indication: ACUTE MYOCARDIAL INFARCTION
     Dosage: IV
     Route: 042
     Dates: start: 20050228, end: 20050228
  2. ABCIXIMAB (ABCIXIMAB) [Suspect]
     Indication: ACUTE MYOCARDIAL INFARCTION
     Dosage: IV
     Route: 042
     Dates: start: 20050228
  3. PERINDOPRIL [Concomitant]
  4. FLUVASTATIN [Concomitant]
  5. INDOBUFEN [Concomitant]
  6. CARVEDILOL [Concomitant]
  7. OMEPRAZOLE [Concomitant]

REACTIONS (1)
  - CAROTID ARTERY STENOSIS [None]
